FAERS Safety Report 24341948 (Version 1)
Quarter: 2024Q3

REPORT INFORMATION
  Report Type: Report from Study
  Country: DE (occurrence: None)
  Receive Date: 20240920
  Receipt Date: 20240920
  Transmission Date: 20241017
  Serious: Yes (Other)
  Sender: ENCUBE ETHICALS
  Company Number: DE-Encube-001328

PATIENT

DRUGS (2)
  1. FLUOROURACIL [Suspect]
     Active Substance: FLUOROURACIL
     Indication: Gastrointestinal neoplasm
     Dosage: 1372.5MG, 24-HOUR INFUSION
  2. MITOMYCIN C [Concomitant]
     Active Substance: MITOMYCIN
     Indication: Gastrointestinal neoplasm
     Dosage: 27.45 MG ABSOLUTE DOSE

REACTIONS (2)
  - Off label use [Unknown]
  - Cytopenia [Unknown]
